FAERS Safety Report 22046486 (Version 1)
Quarter: 2023Q1

REPORT INFORMATION
  Report Type: Report from Study
  Country: CO (occurrence: CO)
  Receive Date: 20230228
  Receipt Date: 20230228
  Transmission Date: 20230418
  Serious: Yes (Hospitalization)
  Sender: FDA-Public Use
  Company Number: CO-ABBVIE-4321321

PATIENT
  Sex: Male
  Weight: 52 kg

DRUGS (4)
  1. ZEMPLAR [Suspect]
     Active Substance: PARICALCITOL
     Indication: Hyperparathyroidism secondary
     Dosage: FORM STRENGTH: 5 MICROGRAM/ POSTDIALYSIS
     Route: 042
     Dates: start: 20190523
  2. TRAZODONE [Concomitant]
     Active Substance: TRAZODONE HYDROCHLORIDE
     Indication: Product used for unknown indication
     Route: 048
     Dates: start: 2015
  3. LOSARTAN [Concomitant]
     Active Substance: LOSARTAN
     Indication: Product used for unknown indication
     Route: 048
     Dates: start: 2015
  4. CLONIDINE [Concomitant]
     Active Substance: CLONIDINE
     Indication: Product used for unknown indication
     Route: 048
     Dates: start: 2015

REACTIONS (24)
  - Illness [Recovering/Resolving]
  - Bloody discharge [Recovering/Resolving]
  - Asthenia [Not Recovered/Not Resolved]
  - Oxygen therapy [Recovering/Resolving]
  - Discouragement [Recovering/Resolving]
  - Purulent discharge [Recovering/Resolving]
  - Amnesia [Not Recovered/Not Resolved]
  - Mobility decreased [Not Recovered/Not Resolved]
  - Insomnia [Not Recovered/Not Resolved]
  - Musculoskeletal disorder [Not Recovered/Not Resolved]
  - Nasal congestion [Recovering/Resolving]
  - Reading disorder [Not Recovered/Not Resolved]
  - Vascular access site complication [Not Recovered/Not Resolved]
  - Dysstasia [Not Recovered/Not Resolved]
  - Oropharyngeal discomfort [Recovering/Resolving]
  - Haemorrhage [Not Recovered/Not Resolved]
  - Rhinorrhoea [Recovering/Resolving]
  - Body height decreased [Recovering/Resolving]
  - Musculoskeletal discomfort [Recovering/Resolving]
  - Chest discomfort [Recovering/Resolving]
  - Haemorrhage [Recovered/Resolved]
  - Choking [Recovering/Resolving]
  - Pallor [Not Recovered/Not Resolved]
  - Influenza [Recovering/Resolving]

NARRATIVE: CASE EVENT DATE: 20210101
